FAERS Safety Report 4474004-7 (Version None)
Quarter: 2004Q4

REPORT INFORMATION
  Report Type: 
  Country: None (occurrence: None)
  Receive Date: 20041008
  Receipt Date: 20040921
  Transmission Date: 20050328
  Serious: Yes (Death, Hospitalization, Other)
  Sender: FDA-Public Use
  Company Number: USA040774114

PATIENT
  Age: 74 Year
  Sex: Female

DRUGS (11)
  1. FORTEO [Suspect]
     Indication: OSTEOPOROSIS
     Dosage: 20 UG/1 DAY
     Dates: start: 20031001, end: 20040412
  2. GLUCOTROL [Concomitant]
  3. PREDNISONE [Concomitant]
  4. CARDIZEM [Concomitant]
  5. KLOR-CON [Concomitant]
  6. FUROSEMIDE [Concomitant]
  7. LANOXIN [Concomitant]
  8. ALLOPURINOL [Concomitant]
  9. COLCHICINE [Concomitant]
  10. DIPYRIDAMOLE [Concomitant]
  11. ASPIRIN [Concomitant]

REACTIONS (3)
  - LEG AMPUTATION [None]
  - LUNG NEOPLASM MALIGNANT [None]
  - PHARMACEUTICAL PRODUCT COMPLAINT [None]
